FAERS Safety Report 11288549 (Version 1)
Quarter: 2015Q3

REPORT INFORMATION
  Report Type: Other
  Country: US (occurrence: US)
  Receive Date: 20150721
  Receipt Date: 20150721
  Transmission Date: 20151125
  Serious: Yes (Other)
  Sender: FDA-Public Use
  Company Number: US-SHIRE-US201507812

PATIENT
  Sex: Female

DRUGS (1)
  1. LIALDA [Suspect]
     Active Substance: MESALAMINE
     Indication: COLITIS ULCERATIVE
     Dosage: UNK UNK, UNKNOWN
     Route: 048
     Dates: start: 2006

REACTIONS (7)
  - Pain [Not Recovered/Not Resolved]
  - Haemorrhage [Unknown]
  - Discomfort [Not Recovered/Not Resolved]
  - Breast cancer [Unknown]
  - Muscle spasms [Unknown]
  - Colitis ulcerative [Not Recovered/Not Resolved]
  - Purulence [Unknown]

NARRATIVE: CASE EVENT DATE: 20150606
